APPROVED DRUG PRODUCT: ALCLOMETASONE DIPROPIONATE
Active Ingredient: ALCLOMETASONE DIPROPIONATE
Strength: 0.05%
Dosage Form/Route: OINTMENT;TOPICAL
Application: A079227 | Product #001
Applicant: GLENMARK PHARMACEUTICALS LTD
Approved: Jul 30, 2009 | RLD: No | RS: No | Type: DISCN